FAERS Safety Report 4790948-0 (Version None)
Quarter: 2005Q4

REPORT INFORMATION
  Report Type: 
  Country: None (occurrence: None)
  Receive Date: 20051005
  Receipt Date: 20051005
  Transmission Date: 20060501
  Serious: Yes (Hospitalization)
  Sender: FDA-Public Use
  Company Number: None

PATIENT
  Age: 72 Year
  Sex: Female
  Weight: 74.3899 kg

DRUGS (2)
  1. DOXIL [Suspect]
     Indication: METASTASIS
     Dosage: 50 MG/M2  ONCE  IV DRIP
     Route: 041
     Dates: start: 20051003, end: 20051003
  2. DOXIL [Suspect]
     Indication: UTERINE CANCER
     Dosage: 50 MG/M2  ONCE  IV DRIP
     Route: 041
     Dates: start: 20051003, end: 20051003

REACTIONS (5)
  - BACK PAIN [None]
  - CHEST PAIN [None]
  - FLUSHING [None]
  - HEADACHE [None]
  - INFUSION RELATED REACTION [None]
